FAERS Safety Report 5569862-9 (Version None)
Quarter: 2007Q4

REPORT INFORMATION
  Report Type: 
  Country: None (occurrence: None)
  Receive Date: 20071220
  Receipt Date: 20070418
  Transmission Date: 20080405
  Serious: No
  Sender: FDA-Public Use
  Company Number: US-ABBOTT-07P-163-0365576-00

PATIENT
  Sex: Female
  Weight: 95.5 kg

DRUGS (4)
  1. OMNICEF [Suspect]
     Indication: BREAST PAIN
     Route: 048
     Dates: start: 20070323, end: 20070402
  2. LACTOBACILLUS ACIDOPHILUS [Concomitant]
     Indication: DRUG USE FOR UNKNOWN INDICATION
     Route: 048
  3. METFORMIN HCL [Concomitant]
     Indication: DIABETES MELLITUS
     Route: 048
  4. LEVOTHYROXINE SODIUM [Concomitant]
     Indication: HYPOTHYROIDISM
     Route: 048

REACTIONS (2)
  - FUNGAL INFECTION [None]
  - PRURITUS [None]
